FAERS Safety Report 10243809 (Version 4)
Quarter: 2014Q3

REPORT INFORMATION
  Report Type: Spontaneous
  Country: JP (occurrence: JP)
  Receive Date: 20140618
  Receipt Date: 20140717
  Transmission Date: 20150326
  Serious: Yes (Hospitalization)
  Sender: FDA-Public Use
  Company Number: JP-PFIZER INC-2014164752

PATIENT
  Age: 51 Year
  Sex: Female
  Weight: 66 kg

DRUGS (5)
  1. CYCLOPHOSPHAMIDE. [Suspect]
     Active Substance: CYCLOPHOSPHAMIDE
     Indication: BREAST CANCER
     Dosage: 500 MG/M2, CYCLIC
     Route: 041
     Dates: start: 20140610, end: 20140610
  2. AVAPRO [Concomitant]
     Active Substance: IRBESARTAN
     Indication: HYPERTENSION
     Dosage: UNK
     Route: 048
     Dates: start: 2012
  3. FARMORUBICIN [Suspect]
     Active Substance: EPIRUBICIN HYDROCHLORIDE
     Indication: BREAST CANCER
     Dosage: 75 MG/M2, CYCLIC
     Route: 041
     Dates: start: 20140610, end: 20140610
  4. BIFIDOBACTERIUM BIFIDUM [Concomitant]
     Dosage: UNK
     Route: 048
     Dates: start: 2012
  5. FLUOROURACIL. [Suspect]
     Active Substance: FLUOROURACIL
     Indication: BREAST CANCER
     Dosage: 500 MG/M2, CYCLIC
     Route: 042
     Dates: start: 20140610, end: 20140610

REACTIONS (2)
  - Gamma-glutamyltransferase increased [Unknown]
  - Convulsion [Recovered/Resolved]

NARRATIVE: CASE EVENT DATE: 20140611
